FAERS Safety Report 17453263 (Version 1)
Quarter: 2020Q1

REPORT INFORMATION
  Report Type: Spontaneous
  Country: US (occurrence: US)
  Receive Date: 20200224
  Receipt Date: 20200224
  Transmission Date: 20200409
  Serious: No
  Sender: FDA-Public Use
  Company Number: US-PERRIGO-19US007277

PATIENT
  Age: 81 Year
  Sex: Male
  Weight: 70.3 kg

DRUGS (2)
  1. LOPERAMIDE HYDROCHLORIDE. [Suspect]
     Active Substance: LOPERAMIDE HYDROCHLORIDE
     Dosage: 4 MG ONCE, THEN 2 MG QD FOR 2 DAYS
     Route: 048
     Dates: start: 20190608, end: 20190610
  2. LOPERAMIDE HYDROCHLORIDE. [Suspect]
     Active Substance: LOPERAMIDE HYDROCHLORIDE
     Indication: DIARRHOEA
     Dosage: 4 MG ONCE, THEN 2 MG QD FOR 2 DAYS
     Route: 048
     Dates: start: 20190527, end: 20190529

REACTIONS (2)
  - Abdominal discomfort [Recovered/Resolved]
  - Incorrect product administration duration [Recovered/Resolved]

NARRATIVE: CASE EVENT DATE: 20190329
